FAERS Safety Report 12820183 (Version 10)
Quarter: 2017Q4

REPORT INFORMATION
  Report Type: Report from Study
  Country: IQ (occurrence: IQ)
  Receive Date: 20161006
  Receipt Date: 20171027
  Transmission Date: 20180320
  Serious: Yes (Hospitalization, Other)
  Sender: FDA-Public Use
  Company Number: PHHY2015IQ161566

PATIENT
  Sex: Male

DRUGS (2)
  1. GLIVEC [Suspect]
     Active Substance: IMATINIB MESYLATE
     Indication: CHRONIC MYELOID LEUKAEMIA
     Dosage: 400 MG, QD
     Route: 048
     Dates: start: 2012
  2. GLIVEC [Suspect]
     Active Substance: IMATINIB MESYLATE
     Dosage: 300 MG, QD
     Route: 048

REACTIONS (22)
  - Dizziness [Recovered/Resolved]
  - Nervousness [Recovered/Resolved]
  - Bladder pain [Unknown]
  - Nausea [Not Recovered/Not Resolved]
  - Abdominal pain upper [Not Recovered/Not Resolved]
  - Pain in extremity [Not Recovered/Not Resolved]
  - Oedema peripheral [Not Recovered/Not Resolved]
  - Fatigue [Not Recovered/Not Resolved]
  - Blood test abnormal [Not Recovered/Not Resolved]
  - Hypotension [Not Recovered/Not Resolved]
  - Stenosis [Unknown]
  - Angina pectoris [Recovered/Resolved]
  - Dysstasia [Unknown]
  - Vomiting [Not Recovered/Not Resolved]
  - Food poisoning [Recovering/Resolving]
  - Amnesia [Unknown]
  - Eating disorder [Unknown]
  - Flank pain [Not Recovered/Not Resolved]
  - Diarrhoea [Recovered/Resolved]
  - Pain [Unknown]
  - Skin discolouration [Not Recovered/Not Resolved]
  - Tremor [Recovered/Resolved]
